FAERS Safety Report 9873498 (Version 1)
Quarter: 2014Q1

REPORT INFORMATION
  Report Type: Other
  Country: US (occurrence: US)
  Receive Date: 20140206
  Receipt Date: 20140206
  Transmission Date: 20141002
  Serious: No
  Sender: FDA-Public Use
  Company Number: US-ACORDA-ACO_34373_2013

PATIENT
  Age: 49 Year
  Sex: Female
  Weight: 95.24 kg

DRUGS (3)
  1. AMPYRA [Suspect]
     Indication: MULTIPLE SCLEROSIS
     Dosage: 10 MG, BID
     Route: 048
     Dates: start: 201006
  2. AMPYRA [Suspect]
     Dosage: 10 MG, QD
     Route: 048
  3. AMPYRA [Suspect]
     Dosage: UNK

REACTIONS (5)
  - Fall [Unknown]
  - Influenza [Unknown]
  - Abdominal discomfort [Unknown]
  - Nasopharyngitis [Unknown]
  - Inappropriate schedule of drug administration [Unknown]
